FAERS Safety Report 7815237-9 (Version None)
Quarter: 2011Q4

REPORT INFORMATION
  Report Type: 
  Country: None (occurrence: None)
  Receive Date: 20111014
  Receipt Date: 20111010
  Transmission Date: 20120403
  Serious: Yes (Hospitalization, Other)
  Sender: FDA-Public Use
  Company Number: BR-ABBOTT-11P-020-0697405-00

PATIENT
  Sex: Male
  Weight: 86 kg

DRUGS (4)
  1. LISADOR [Concomitant]
     Indication: PRODUCT USED FOR UNKNOWN INDICATION
  2. HUMIRA [Suspect]
     Dosage: RECEIVED PROPER INDUCTION DOSE
     Dates: start: 20110903
  3. HUMIRA [Suspect]
     Indication: CROHN'S DISEASE
     Route: 058
     Dates: start: 20090101
  4. DIPYRONE TAB [Concomitant]
     Indication: PRODUCT USED FOR UNKNOWN INDICATION

REACTIONS (10)
  - COLECTOMY [None]
  - PAIN [None]
  - DRUG INEFFECTIVE [None]
  - DIABETES MELLITUS [None]
  - ANORECTAL DISORDER [None]
  - CROHN'S DISEASE [None]
  - RECTAL PROLAPSE [None]
  - INAPPROPRIATE SCHEDULE OF DRUG ADMINISTRATION [None]
  - ARTHRALGIA [None]
  - GASTROINTESTINAL DISORDER [None]
